FAERS Safety Report 8111719-3 (Version None)
Quarter: 2011Q4

REPORT INFORMATION
  Report Type: 
  Country: None (occurrence: None)
  Receive Date: 20111223
  Receipt Date: 20101116
  Transmission Date: 20120403
  Serious: Yes (Other)
  Sender: FDA-Public Use
  Company Number: PHHY2010US78314

PATIENT
  Sex: Male

DRUGS (1)
  1. CLOZARIL [Suspect]
     Dosage: 100 MG, QD (IN THE MORNING) 450 MG, QD (AT NIGHT)

REACTIONS (1)
  - ANTIPSYCHOTIC DRUG LEVEL INCREASED [None]
